FAERS Safety Report 6317780-0 (Version None)
Quarter: 2009Q3

REPORT INFORMATION
  Report Type: 
  Country: None (occurrence: None)
  Receive Date: 20090820
  Receipt Date: 20090820
  Transmission Date: 20100115
  Serious: Yes (Life-Threatening, Hospitalization)
  Sender: FDA-Public Use
  Company Number: None

PATIENT
  Age: 59 Year
  Sex: Male
  Weight: 98.4306 kg

DRUGS (9)
  1. CIGARREST UNKNOWN CIGARREST [Suspect]
     Indication: SMOKING CESSATION THERAPY
     Dosage: 1 TABLET PO
     Route: 048
     Dates: start: 20090810, end: 20090810
  2. FOSINONPRIL [Concomitant]
  3. ATAZANAVIR [Concomitant]
  4. . [Concomitant]
  5. RITONAVIR [Concomitant]
  6. TRUVADA [Concomitant]
  7. GEMFIBROZIL [Concomitant]
  8. METFORMIN HCL [Concomitant]
  9. ASPIRIN [Concomitant]

REACTIONS (4)
  - ANGIOEDEMA [None]
  - DYSPHAGIA [None]
  - DYSPNOEA [None]
  - SWOLLEN TONGUE [None]
